FAERS Safety Report 7450956-8 (Version None)
Quarter: 2011Q2

REPORT INFORMATION
  Report Type: 
  Country: None (occurrence: None)
  Receive Date: 20110502
  Receipt Date: 20110422
  Transmission Date: 20111010
  Serious: Yes (Other)
  Sender: FDA-Public Use
  Company Number: CA-ROCHE-749094

PATIENT
  Sex: Female
  Weight: 140 kg

DRUGS (5)
  1. BEVACIZUMAB [Suspect]
     Indication: GLIOBLASTOMA
     Dosage: FORM: INFUSION
     Route: 042
     Dates: start: 20100129, end: 20110408
  2. STEMETIL [Concomitant]
  3. TEMODAL [Concomitant]
  4. ZOFRAN [Concomitant]
  5. DILANTIN [Concomitant]

REACTIONS (6)
  - ABDOMINAL DISCOMFORT [None]
  - PROTEIN URINE PRESENT [None]
  - INFLUENZA [None]
  - CONVULSION [None]
  - PYREXIA [None]
  - CONSTIPATION [None]
